FAERS Safety Report 23199997 (Version 1)
Quarter: 2023Q4

REPORT INFORMATION
  Report Type: Other
  Country: MM (occurrence: None)
  Receive Date: 20231117
  Receipt Date: 20231117
  Transmission Date: 20240110
  Serious: Yes (Death)
  Sender: FDA-Public Use
  Company Number: MM-ROCHE-3458604

PATIENT
  Age: 62 Year
  Sex: Female

DRUGS (2)
  1. TECENTRIQ [Suspect]
     Active Substance: ATEZOLIZUMAB
     Indication: Lung neoplasm malignant
     Route: 042
     Dates: start: 20230420, end: 20230601
  2. AVASTIN [Suspect]
     Active Substance: BEVACIZUMAB
     Indication: Lung neoplasm malignant
     Route: 042
     Dates: start: 20230420, end: 20230601

REACTIONS (1)
  - Death [Fatal]

NARRATIVE: CASE EVENT DATE: 20230801
